FAERS Safety Report 14611208 (Version 1)
Quarter: 2018Q1

REPORT INFORMATION
  Report Type: Report from Study
  Country: NL (occurrence: NL)
  Receive Date: 20180308
  Receipt Date: 20180308
  Transmission Date: 20180509
  Serious: Yes (Other)
  Sender: FDA-Public Use
  Company Number: NL-ROCHE-2082465

PATIENT
  Sex: Male
  Weight: 60 kg

DRUGS (7)
  1. RANIBIZUMAB. [Suspect]
     Active Substance: RANIBIZUMAB
     Indication: VISUAL IMPAIRMENT
     Route: 031
     Dates: start: 20170217
  2. RANIBIZUMAB. [Suspect]
     Active Substance: RANIBIZUMAB
     Route: 031
     Dates: start: 20180202, end: 20180202
  3. RANIBIZUMAB. [Suspect]
     Active Substance: RANIBIZUMAB
     Route: 031
     Dates: start: 20171208
  4. RANIBIZUMAB. [Suspect]
     Active Substance: RANIBIZUMAB
     Indication: MACULAR OEDEMA
     Route: 031
     Dates: start: 20170414
  5. RANIBIZUMAB. [Suspect]
     Active Substance: RANIBIZUMAB
     Route: 031
     Dates: start: 20171013
  6. RANIBIZUMAB. [Suspect]
     Active Substance: RANIBIZUMAB
     Route: 031
     Dates: start: 20170815
  7. RANIBIZUMAB. [Suspect]
     Active Substance: RANIBIZUMAB
     Route: 031
     Dates: start: 20170616

REACTIONS (1)
  - Hyphaema [Unknown]

NARRATIVE: CASE EVENT DATE: 20180203
